FAERS Safety Report 6897372-5 (Version None)
Quarter: 2010Q3

REPORT INFORMATION
  Report Type: 
  Country: None (occurrence: None)
  Receive Date: 20100802
  Receipt Date: 20070611
  Transmission Date: 20110219
  Serious: No
  Sender: FDA-Public Use
  Company Number: US-PFIZER INC-2007031085

PATIENT
  Sex: Female

DRUGS (2)
  1. PREGABALIN [Suspect]
  2. NEURONTIN [Suspect]

REACTIONS (5)
  - DRUG INEFFECTIVE [None]
  - FATIGUE [None]
  - NERVOUSNESS [None]
  - NIGHT SWEATS [None]
  - TREMOR [None]
